FAERS Safety Report 7579625-0 (Version None)
Quarter: 2011Q2

REPORT INFORMATION
  Report Type: 
  Country: None (occurrence: None)
  Receive Date: 20110629
  Receipt Date: 20110616
  Transmission Date: 20111010
  Serious: Yes (Other)
  Sender: FDA-Public Use
  Company Number: US-BAYER-2011-019079

PATIENT
  Age: 38 Year
  Sex: Female
  Weight: 97.959 kg

DRUGS (1)
  1. MIRENA [Suspect]
     Indication: CONTRACEPTION
     Dosage: 20 MCG/24HR, UNK
     Dates: start: 20100317, end: 20110307

REACTIONS (5)
  - DEVICE DISLOCATION [None]
  - VAGINAL HAEMORRHAGE [None]
  - DISCOMFORT [None]
  - COMPLICATION OF DEVICE REMOVAL [None]
  - DEVICE EXPULSION [None]
